FAERS Safety Report 9625706 (Version 2)
Quarter: 2013Q4

REPORT INFORMATION
  Report Type: Spontaneous
  Country: FR (occurrence: FR)
  Receive Date: 20131016
  Receipt Date: 20131016
  Transmission Date: 20140711
  Serious: Yes (Other)
  Sender: FDA-Public Use
  Company Number: FR-PFIZER INC-2013057897

PATIENT
  Age: 40 Year
  Sex: Male

DRUGS (3)
  1. CEFPODOXIME PROXETIL [Suspect]
     Indication: PNEUMONIA
     Dosage: 4 DF, 100 MG 1X/DAY
     Route: 048
     Dates: start: 20130109, end: 20130111
  2. CANNABIS [Concomitant]
  3. CEFPODOXIME WINTHROP [Concomitant]
     Dosage: UNK
     Dates: start: 2009

REACTIONS (5)
  - Apparent death [Unknown]
  - Suicidal ideation [Unknown]
  - Anxiety [Recovered/Resolved]
  - Impulsive behaviour [Recovered/Resolved]
  - Insomnia [Recovered/Resolved]
